FAERS Safety Report 6957493-5 (Version None)
Quarter: 2010Q3

REPORT INFORMATION
  Report Type: 
  Country: None (occurrence: None)
  Receive Date: 20100831
  Receipt Date: 20100823
  Transmission Date: 20110219
  Serious: Yes (Death, Life-Threatening, Hospitalization)
  Sender: FDA-Public Use
  Company Number: NL-GENZYME-CLOF-1001152

PATIENT
  Sex: Male
  Weight: 73.9 kg

DRUGS (3)
  1. EVOLTRA [Suspect]
     Indication: ACUTE LEUKAEMIA
     Dosage: 112 IV, D 2, 4, 6, 8 + 10
     Route: 042
     Dates: start: 20100708, end: 20100712
  2. CYTARABINE [Suspect]
     Indication: ACUTE MYELOID LEUKAEMIA
     Dosage: 100 MG/M2 CONT INFUS D1-10
     Route: 042
     Dates: start: 20100707, end: 20100716
  3. IDARUBICIN HCL [Suspect]
     Indication: ACUTE LEUKAEMIA
     Dosage: 10 MG/M2, D1,3 AND 5
     Route: 042
     Dates: start: 20100707, end: 20100711

REACTIONS (13)
  - CENTRAL NERVOUS SYSTEM LESION [None]
  - CEREBRAL HAEMORRHAGE [None]
  - CHLOROMA [None]
  - COLITIS [None]
  - COMA [None]
  - FEBRILE NEUTROPENIA [None]
  - FUNGAL INFECTION [None]
  - HEMIPARESIS [None]
  - INFECTION [None]
  - PANCYTOPENIA [None]
  - PYREXIA [None]
  - RESTLESSNESS [None]
  - TOXOPLASMOSIS [None]
